FAERS Safety Report 5101950-3 (Version None)
Quarter: 2006Q3

REPORT INFORMATION
  Report Type: 
  Country: None (occurrence: None)
  Receive Date: 20060907
  Receipt Date: 20060830
  Transmission Date: 20061208
  Serious: Yes (Other)
  Sender: FDA-Public Use
  Company Number: HQWYE220131AUG06

PATIENT
  Age: 60 Year
  Sex: Female
  Weight: 90.8 kg

DRUGS (5)
  1. ADVIL [Suspect]
     Indication: ARTHRITIS
     Dosage: 2 TO 4 TABLETS DAILY, ORAL
     Route: 048
     Dates: end: 20060201
  2. ADVIL [Suspect]
     Indication: PAIN IN EXTREMITY
     Dosage: 2 TO 4 TABLETS DAILY, ORAL
     Route: 048
     Dates: end: 20060201
  3. COZAAR [Concomitant]
  4. MAXZIDE [Concomitant]
  5. ZOCOR [Concomitant]

REACTIONS (1)
  - RENAL FAILURE [None]
